FAERS Safety Report 9515634 (Version 1)
Quarter: 2013Q1

REPORT INFORMATION
  Report Type: Spontaneous
  Country: US (occurrence: None)
  Receive Date: 20130305
  Receipt Date: 20130305
  Transmission Date: 20140127
  Serious: Yes (Other)
  Sender: FDA-Public Use
  Company Number: 163-21880-12103628

PATIENT
  Age: 68 Year
  Sex: Female
  Weight: 34.02 kg

DRUGS (9)
  1. REVLIMID [Suspect]
     Indication: PLASMA CELL MYELOMA
     Route: 048
     Dates: start: 20121001
  2. CALCIUM 500 (CALCIUM) (TABLETS) [Concomitant]
  3. CHOLESTYRAMINE LIGHT 4 (COLESTYRAMINE (POWDER) [Concomitant]
  4. IMODIUM ADVANCED (IMODIUM ADVANCED) (TABLETS) [Concomitant]
  5. IMODIUM ADVANCED (IMODIUM ADVANCED) (TABLETS) [Concomitant]
  6. IRON (IRON) (TABLETS) [Concomitant]
  7. MULTIVITAMINS (MULTIVITAMINS) (CAPSULES) [Concomitant]
  8. VERAPAMIL (VERAPAMIL) (CAPSULES) [Concomitant]
  9. VITAMIN D (ERGOCALCIFEROL) (CAPSULES) [Concomitant]

REACTIONS (1)
  - Somnolence [None]
